FAERS Safety Report 21363500 (Version 2)
Quarter: 2022Q4

REPORT INFORMATION
  Report Type: Spontaneous
  Country: AT (occurrence: AT)
  Receive Date: 20220922
  Receipt Date: 20221007
  Transmission Date: 20230113
  Serious: Yes (Life-Threatening, Hospitalization)
  Sender: FDA-Public Use
  Company Number: AT-TEVA-2022-AT-2074743

PATIENT
  Age: 56 Year
  Sex: Male

DRUGS (3)
  1. CLINDAMYCIN [Suspect]
     Active Substance: CLINDAMYCIN
     Indication: Toxic shock syndrome staphylococcal
     Dosage: HIGH DOSE
     Route: 065
  2. SULTAMICILLIN TOSYLATE [Suspect]
     Active Substance: SULTAMICILLIN TOSYLATE
     Indication: Toxic shock syndrome staphylococcal
     Dosage: HIGH DOSE
     Route: 065
  3. CORTISONE [Concomitant]
     Active Substance: CORTISONE
     Indication: Sepsis
     Route: 065

REACTIONS (1)
  - Drug ineffective [Unknown]
